FAERS Safety Report 8445821-3 (Version None)
Quarter: 2012Q2

REPORT INFORMATION
  Report Type: 
  Country: None (occurrence: None)
  Receive Date: 20120618
  Receipt Date: 20120614
  Transmission Date: 20120825
  Serious: Yes (Other)
  Sender: FDA-Public Use
  Company Number: PHHY2012AR051652

PATIENT
  Sex: Female

DRUGS (1)
  1. DIOVAN [Suspect]
     Indication: HYPERTENSION
     Dosage: 80 MG, DAILY
     Dates: start: 20120501

REACTIONS (6)
  - ODONTOGENIC CYST [None]
  - TOOTH DISORDER [None]
  - PROCEDURAL PAIN [None]
  - SWELLING [None]
  - PAIN [None]
  - TOOTHACHE [None]
